FAERS Safety Report 8453005 (Version 11)
Quarter: 2013Q4

REPORT INFORMATION
  Report Type: Report from Study
  Country: FR (occurrence: FR)
  Receive Date: 20120312
  Receipt Date: 20131029
  Transmission Date: 20140711
  Serious: Yes (Death, Hospitalization, Other)
  Sender: FDA-Public Use
  Company Number: FR-AMGEN-FRACT2012014060

PATIENT
  Age: 47 Year
  Sex: Female
  Weight: 60 kg

DRUGS (19)
  1. PANITUMUMAB [Suspect]
     Indication: GASTROOESOPHAGEAL CANCER
     Dosage: 360 MG, UNK
     Route: 042
     Dates: start: 20120105, end: 20120215
  2. LEVOFOLINATE CALCIUM [Concomitant]
     Dosage: 330 MG, UNK
     Route: 042
     Dates: start: 20120105, end: 20120215
  3. OXALIPLATIN [Concomitant]
     Dosage: 140 MG, UNK
     Route: 042
     Dates: start: 20120105, end: 20120215
  4. 5-FLUOROURACIL [Concomitant]
     Dosage: 660 MG, UNK
     Route: 040
     Dates: start: 20120105, end: 20120215
  5. 5-FLUOROURACIL [Concomitant]
     Dosage: 4015 MG, UNK
     Route: 042
     Dates: start: 20120105, end: 20120216
  6. GAVISCON [Concomitant]
     Indication: GASTROOESOPHAGEAL REFLUX DISEASE
     Dosage: UNK
     Dates: start: 201112, end: 201201
  7. ERYFLUID [Concomitant]
     Dosage: UNK
     Route: 061
     Dates: start: 20120106
  8. DEXERYL [Concomitant]
  9. TOLEXINE [Concomitant]
     Dosage: 100 MG, QD
     Route: 048
     Dates: start: 20120106
  10. PRIMPERAN [Concomitant]
     Dosage: 20 MG, UNK
     Route: 042
     Dates: start: 20120106
  11. INIPOMP [Concomitant]
     Indication: GASTROOESOPHAGEAL REFLUX DISEASE
     Dosage: 40 MG, UNK
     Route: 042
     Dates: start: 20120106
  12. SOLUMEDROL [Concomitant]
     Dosage: 60 MG, UNK
     Dates: start: 20120105
  13. TRANXENE [Concomitant]
     Dosage: 20 MG, UNK
     Route: 042
     Dates: start: 20120106, end: 201202
  14. KABIVEN [Concomitant]
     Dosage: UNK
     Dates: start: 20120106
  15. DECAN [Concomitant]
     Dosage: UNK
     Dates: start: 20120106
  16. CERNEVIT [Concomitant]
     Dosage: UNK
     Dates: start: 20120106
  17. INNOHEP [Concomitant]
     Indication: MESENTERIC VEIN THROMBOSIS
     Dosage: UNK
     Route: 058
     Dates: start: 20120106
  18. METHYLPREDNISOLONE [Concomitant]
     Dosage: 80 MG, UNK
     Dates: start: 20111231, end: 20120104
  19. EUPANTOL [Concomitant]
     Indication: GASTROOESOPHAGEAL REFLUX DISEASE
     Dosage: 40 MG, UNK
     Route: 042
     Dates: start: 20111230, end: 20120107

REACTIONS (11)
  - Hypokalaemia [Recovered/Resolved]
  - Dehydration [Fatal]
  - Gastrointestinal infection [Not Recovered/Not Resolved]
  - General physical health deterioration [Fatal]
  - Disease progression [Fatal]
  - Asthenia [Not Recovered/Not Resolved]
  - Vomiting [Recovered/Resolved]
  - Diarrhoea [Recovered/Resolved]
  - Pulmonary embolism [Not Recovered/Not Resolved]
  - Blood creatine decreased [Not Recovered/Not Resolved]
  - Malnutrition [Unknown]
